FAERS Safety Report 7416504-3 (Version None)
Quarter: 2011Q2

REPORT INFORMATION
  Report Type: 
  Country: None (occurrence: None)
  Receive Date: 20110414
  Receipt Date: 20090921
  Transmission Date: 20111010
  Serious: Yes (Other)
  Sender: FDA-Public Use
  Company Number: DE-GENENTECH-316660

PATIENT
  Age: 78 Year
  Sex: Female

DRUGS (2)
  1. LUCENTIS [Suspect]
     Indication: MACULAR DEGENERATION
     Dosage: UNK
     Route: 031
     Dates: start: 20081030
  2. AVASTIN [Suspect]
     Indication: MACULAR DEGENERATION

REACTIONS (10)
  - EYE HAEMORRHAGE [None]
  - CATARACT [None]
  - BRONCHITIS [None]
  - DRUG INEFFECTIVE [None]
  - RETINAL VASCULAR DISORDER [None]
  - MALAISE [None]
  - HEADACHE [None]
  - NASOPHARYNGITIS [None]
  - VISUAL ACUITY REDUCED [None]
  - ARRHYTHMIA [None]
